FAERS Safety Report 25151372 (Version 1)
Quarter: 2025Q2

REPORT INFORMATION
  Report Type: Spontaneous
  Country: DE (occurrence: DE)
  Receive Date: 20250402
  Receipt Date: 20250402
  Transmission Date: 20250716
  Serious: Yes (Other)
  Sender: AMGEN
  Company Number: DE-AMGEN-DEUSP2025060661

PATIENT

DRUGS (2)
  1. CARFILZOMIB [Suspect]
     Active Substance: CARFILZOMIB
     Indication: Lymphoma
     Route: 065
  2. CARFILZOMIB [Suspect]
     Active Substance: CARFILZOMIB
     Indication: Off label use

REACTIONS (11)
  - Thrombosis [Unknown]
  - Deep vein thrombosis [Unknown]
  - Superficial vein thrombosis [Unknown]
  - Splenic infarction [Unknown]
  - Pulmonary embolism [Unknown]
  - Urinary bladder haemorrhage [Unknown]
  - Haemorrhage [Unknown]
  - Off label use [Unknown]
  - Epistaxis [Unknown]
  - Jugular vein thrombosis [Unknown]
  - Venous thrombosis [Unknown]
